FAERS Safety Report 10677047 (Version 10)
Quarter: 2017Q1

REPORT INFORMATION
  Report Type: Spontaneous
  Country: US (occurrence: US)
  Receive Date: 20141226
  Receipt Date: 20170112
  Transmission Date: 20170428
  Serious: Yes (Hospitalization, Other)
  Sender: FDA-Public Use
  Company Number: US-ASTRAZENECA-2014SE96606

PATIENT
  Age: 1009 Month
  Sex: Female
  Weight: 66.2 kg

DRUGS (25)
  1. NEXIUM 24HR [Suspect]
     Active Substance: ESOMEPRAZOLE MAGNESIUM
     Indication: NAUSEA
     Route: 048
     Dates: end: 20161213
  2. NEXIUM 24HR [Suspect]
     Active Substance: ESOMEPRAZOLE MAGNESIUM
     Indication: DYSPEPSIA
     Route: 048
  3. NEXIUM 24HR [Suspect]
     Active Substance: ESOMEPRAZOLE MAGNESIUM
     Indication: ABDOMINAL PAIN UPPER
     Route: 048
  4. ALOE [Concomitant]
     Active Substance: ALOE
     Dosage: 2CAPFULLS IN THE MORNING AND TWO CAPFULLS AFTER LUNCH AND TWO CAPFULLS AFTER DINNER
     Route: 048
     Dates: start: 2014
  5. KLONOPIN [Concomitant]
     Active Substance: CLONAZEPAM
     Indication: URINARY TRACT INFECTION
     Dosage: 0.5MG UNKNOWN
     Route: 048
  6. D-MANNOSE [Concomitant]
     Indication: URINARY TRACT INFECTION
     Dosage: ONCE DAILY, OFF AND ON FOR 3 YEARS
  7. NEXIUM [Suspect]
     Active Substance: ESOMEPRAZOLE MAGNESIUM
     Indication: GASTROOESOPHAGEAL REFLUX DISEASE
     Route: 048
  8. NEXIUM 24HR [Suspect]
     Active Substance: ESOMEPRAZOLE MAGNESIUM
     Indication: NAUSEA
     Route: 048
     Dates: start: 20141205, end: 20160621
  9. NEXIUM 24HR [Suspect]
     Active Substance: ESOMEPRAZOLE MAGNESIUM
     Indication: ABDOMINAL PAIN UPPER
     Route: 048
     Dates: start: 20141205, end: 20160621
  10. NEXIUM 24HR [Suspect]
     Active Substance: ESOMEPRAZOLE MAGNESIUM
     Indication: DYSPEPSIA
     Route: 048
     Dates: end: 20161213
  11. NEXIUM 24HR [Suspect]
     Active Substance: ESOMEPRAZOLE MAGNESIUM
     Indication: ABDOMINAL PAIN UPPER
     Route: 048
     Dates: end: 20161213
  12. NEXIUM 24HR [Suspect]
     Active Substance: ESOMEPRAZOLE MAGNESIUM
     Indication: GASTROOESOPHAGEAL REFLUX DISEASE
     Route: 048
  13. MAGNESIUM [Concomitant]
     Active Substance: MAGNESIUM
  14. NEXIUM 24HR [Suspect]
     Active Substance: ESOMEPRAZOLE MAGNESIUM
     Indication: DYSPEPSIA
     Route: 048
     Dates: start: 20141205, end: 20160621
  15. NEXIUM 24HR [Suspect]
     Active Substance: ESOMEPRAZOLE MAGNESIUM
     Indication: GASTROOESOPHAGEAL REFLUX DISEASE
     Route: 048
     Dates: start: 20141205, end: 20160621
  16. REMERON [Concomitant]
     Active Substance: MIRTAZAPINE
     Indication: URINARY TRACT INFECTION
     Dates: start: 201507
  17. TUMS [Concomitant]
     Active Substance: CALCIUM CARBONATE
  18. ASPIRIN. [Concomitant]
     Active Substance: ASPIRIN
  19. NEXIUM 24HR [Suspect]
     Active Substance: ESOMEPRAZOLE MAGNESIUM
     Indication: GASTROOESOPHAGEAL REFLUX DISEASE
     Route: 048
     Dates: end: 20161213
  20. NEXIUM 24HR [Suspect]
     Active Substance: ESOMEPRAZOLE MAGNESIUM
     Indication: NAUSEA
     Route: 048
  21. ALOE [Concomitant]
     Active Substance: ALOE
     Dates: start: 20160621
  22. NEXIUM [Suspect]
     Active Substance: ESOMEPRAZOLE MAGNESIUM
     Indication: DYSPEPSIA
     Route: 048
  23. PROBIOTICS [Concomitant]
     Active Substance: PROBIOTICS NOS
     Dosage: ONE DOSAGE FORM (20 BILLION) A DAY
     Dates: start: 2014
  24. PROBIOTIC [Concomitant]
     Active Substance: PROBIOTICS NOS
  25. CENTRUM SILVER [Concomitant]
     Active Substance: MINERALS\VITAMINS
     Dates: start: 2014

REACTIONS (13)
  - Headache [Not Recovered/Not Resolved]
  - Paraesthesia [Not Recovered/Not Resolved]
  - Diarrhoea [Recovered/Resolved]
  - Dizziness [Recovered/Resolved]
  - Neck pain [Not Recovered/Not Resolved]
  - Muscular weakness [Not Recovered/Not Resolved]
  - Pain in extremity [Unknown]
  - Asthenia [Recovered/Resolved]
  - Weight decreased [Unknown]
  - Dyspnoea [Not Recovered/Not Resolved]
  - Product use issue [Not Recovered/Not Resolved]
  - Nausea [Not Recovered/Not Resolved]
  - Intentional product use issue [Not Recovered/Not Resolved]

NARRATIVE: CASE EVENT DATE: 201411
